FAERS Safety Report 5636639-5 (Version None)
Quarter: 2008Q1

REPORT INFORMATION
  Report Type: 
  Country: None (occurrence: None)
  Receive Date: 20080225
  Receipt Date: 20080213
  Transmission Date: 20080703
  Serious: Yes (Hospitalization, Disabling)
  Sender: FDA-Public Use
  Company Number: US-ROCHE-400579

PATIENT
  Age: 24 Year
  Sex: Male
  Weight: 93.9 kg

DRUGS (53)
  1. ACCUTANE [Suspect]
     Indication: ACNE
     Route: 048
     Dates: start: 19890101, end: 19890101
  2. ACCUTANE [Suspect]
     Route: 048
     Dates: start: 19930301, end: 19930816
  3. ACCUTANE [Suspect]
     Route: 048
     Dates: start: 19931103, end: 19940401
  4. ACCUTANE [Suspect]
     Route: 048
     Dates: start: 19960109
  5. ACCUTANE [Suspect]
     Route: 048
     Dates: start: 19961001
  6. ACCUTANE [Suspect]
     Dosage: 3RD COURSE.
     Route: 048
     Dates: start: 19970101, end: 19970401
  7. ACCUTANE [Suspect]
     Dosage: DAILY FOR ONE MONTH [EST. JUL1997],
     Route: 048
     Dates: start: 19970616, end: 19970701
  8. ACCUTANE [Suspect]
     Dosage: 40 MG/D ON MONDAY, WEDNESDAY AND FRIDAY.
     Route: 048
     Dates: start: 19970701, end: 19971201
  9. ACCUTANE [Suspect]
     Dosage: 40 MG ONCE DAILY ON MONDAY, WEDNESDAY AND FRIDAY.
     Route: 048
     Dates: end: 20010102
  10. ACCUTANE [Suspect]
     Dosage: DOSE IS INCREASED TO ACCUTANE 40 MG ONCE DAILY FOR 3 MONTHS [EST. END APR2001].
     Route: 048
     Dates: start: 20010102, end: 20010401
  11. ACCUTANE [Suspect]
     Dosage: TAKEN ONCE EVERY THREE TO FIVE DAYS AS NECESSARY.
     Route: 048
     Dates: start: 20010423
  12. ACCUTANE [Suspect]
     Dosage: ACCUTANE 40 MG/DAY ON MONDAY, WEDNESDAY AND FRIDAY.
     Route: 048
     Dates: start: 20020408
  13. ACCUTANE [Suspect]
     Dosage: EVERY OTHER DAY FOR 1-2 WEEKS AS NEEDED.
     Route: 048
     Dates: start: 20020611
  14. ACCUTANE [Suspect]
     Route: 048
     Dates: start: 20040419
  15. ACCUTANE [Suspect]
     Dosage: STRENGTH. 40 MG.
     Route: 048
     Dates: start: 20051031
  16. BACTRIM DS [Concomitant]
     Route: 048
     Dates: start: 19930119
  17. RETIN-A [Concomitant]
     Route: 061
     Dates: start: 19930119
  18. PANOXYL [Concomitant]
     Route: 061
     Dates: start: 19930119
  19. BACTROBAN [Concomitant]
     Route: 061
     Dates: start: 19940520
  20. BENZAC 5 [Concomitant]
     Route: 061
     Dates: start: 19940520
  21. KENALOG-10 [Concomitant]
     Dosage: IN JUL-92: PATIENT RECEIVED KENALOG IN ORABASE FOR APHTHOUS ULCERS.
     Dates: start: 19940526, end: 19940526
  22. METROGEL [Concomitant]
     Route: 061
     Dates: start: 19941123
  23. SPECTAZOLE [Concomitant]
     Route: 061
     Dates: start: 19941123
  24. DIFLUCAN [Concomitant]
     Dosage: DOSAGE REGIMEN REPORTED AS: 200MG.
     Route: 048
     Dates: start: 19950814
  25. ERYTHROMYCIN [Concomitant]
     Indication: ACNE
     Dates: start: 19920728
  26. CLEOCIN T [Concomitant]
     Indication: ACNE
     Dates: start: 19920728
  27. NIZORAL CREAM [Concomitant]
     Indication: ACNE
     Route: 061
     Dates: start: 19920728
  28. LIDEX [Concomitant]
     Indication: ULCER
     Dates: start: 19920728
  29. CIPRO [Concomitant]
     Dosage: RESTARTED ON 28 JUL 2004 FOR OTITIS EXTERNA.
     Dates: start: 19960109
  30. BROMFED [Concomitant]
     Indication: EUSTACHIAN TUBE DYSFUNCTION
     Dates: start: 19990218
  31. METAMUCIL [Concomitant]
     Dates: start: 19991008
  32. GAS-X [Concomitant]
     Dates: start: 19991008
  33. MYLANTA PLUS [Concomitant]
     Dates: start: 19991008
  34. GENERIC UNKNOWN [Concomitant]
     Dosage: TRADE NAME GIVEN AS: SITZ BATHS.
     Dates: start: 20010531
  35. KEFLEX [Concomitant]
     Dates: start: 20010531
  36. ANTIBIOTICS NOS [Concomitant]
     Dates: start: 20010621
  37. LEVAQUIN [Concomitant]
     Dosage: TAKEN PRIOR TO SURGERY ON 22 AUG-01.
     Dates: start: 20010817
  38. DURATUSS [Concomitant]
     Dosage: STOPPED AND RESTARTED IN 04 APR 2002.
     Dates: start: 20011004
  39. ZITHROMAX [Concomitant]
     Dosage: STOPPED AND RESTARTED IN 04 APR 2002 AND 18 AUG 2003.
     Dates: start: 20011004
  40. BENADRYL [Concomitant]
     Dates: start: 20011004
  41. TUSSIONEX [Concomitant]
     Dates: start: 20020404
  42. DOXYCYCLINE [Concomitant]
     Indication: SINUSITIS
     Dates: start: 20020605
  43. LORTAB [Concomitant]
     Indication: SINUSITIS
     Dates: start: 20020605
  44. ALLEGRA [Concomitant]
     Indication: ALLERGIC SINUSITIS
     Dates: start: 20030818
  45. IBUPROFEN [Concomitant]
     Dosage: STOPPED AND RETAKEN ON 3 MAR 2005.
     Dates: start: 20041005
  46. SUDAFED 12 HOUR [Concomitant]
     Dates: start: 20050504
  47. NIACIN [Concomitant]
     Dates: start: 20050105
  48. SEPTRA DS [Concomitant]
     Dates: start: 19890407, end: 19910919
  49. MOTRIN [Concomitant]
     Dates: start: 19890407
  50. DESOWEN [Concomitant]
     Dates: start: 19911125
  51. LOPROX [Concomitant]
     Dates: start: 19911125
  52. ACNE MEDICATION [Concomitant]
     Dosage: TRADE NAME: IL TAC.
     Dates: start: 19971105
  53. CEPHALEXIN [Concomitant]
     Dates: start: 20030527, end: 20030607

REACTIONS (24)
  - ABDOMINAL PAIN UPPER [None]
  - ANAEMIA [None]
  - ANAL FISSURE [None]
  - ANAL HAEMORRHAGE [None]
  - ARTERIOSCLEROSIS [None]
  - ARTHRALGIA [None]
  - BACK PAIN [None]
  - CARDIAC DISORDER [None]
  - CHEST PAIN [None]
  - COLON ADENOMA [None]
  - CROHN'S DISEASE [None]
  - DECREASED APPETITE [None]
  - FATIGUE [None]
  - FLANK PAIN [None]
  - GASTROINTESTINAL DISORDER [None]
  - GASTROINTESTINAL HAEMORRHAGE [None]
  - GROIN PAIN [None]
  - HAEMORRHOIDS [None]
  - ILEITIS [None]
  - INFLAMMATORY BOWEL DISEASE [None]
  - IRRITABLE BOWEL SYNDROME [None]
  - MULTI-ORGAN DISORDER [None]
  - PAIN IN EXTREMITY [None]
  - PERIRECTAL ABSCESS [None]
